FAERS Safety Report 8778381 (Version 1)
Quarter: 2012Q4

REPORT INFORMATION
  Report Type: 
  Country: US (occurrence: US)
  Receive Date: 20120912
  Receipt Date: 20120912
  Transmission Date: 20130627
  Serious: Yes (Hospitalization)
  Sender: FDA-Public Use
  Company Number: US-GLAXOSMITHKLINE-A0875784A

PATIENT
  Sex: Male
  Weight: 99.5 kg

DRUGS (1)
  1. AVANDIA [Suspect]
     Indication: DIABETES MELLITUS
     Dosage: 4MG Twice per day
     Route: 048
     Dates: start: 2004, end: 2006

REACTIONS (3)
  - Cardiac failure congestive [Recovered/Resolved]
  - Cardiac disorder [Unknown]
  - Coronary artery bypass [Unknown]
